FAERS Safety Report 6604846-0 (Version None)
Quarter: 2010Q1

REPORT INFORMATION
  Report Type: 
  Country: None (occurrence: None)
  Receive Date: 20100226
  Receipt Date: 20100218
  Transmission Date: 20100710
  Serious: Yes (Other)
  Sender: FDA-Public Use
  Company Number: B0634490A

PATIENT
  Age: 41 Year
  Sex: Male

DRUGS (1)
  1. CIGANON CQ1 [Suspect]
     Dosage: 14MG PER DAY
     Route: 062
     Dates: start: 20100127, end: 20100210

REACTIONS (5)
  - EAR PAIN [None]
  - FEELING ABNORMAL [None]
  - OROPHARYNGEAL PAIN [None]
  - OROPHARYNGEAL SWELLING [None]
  - SOMNOLENCE [None]
